FAERS Safety Report 6294958-6 (Version None)
Quarter: 2009Q3

REPORT INFORMATION
  Report Type: 
  Country: None (occurrence: None)
  Receive Date: 20090803
  Receipt Date: 20090722
  Transmission Date: 20100115
  Serious: Yes (Other)
  Sender: FDA-Public Use
  Company Number: RU-NOVOPROD-289843

PATIENT
  Sex: Female

DRUGS (18)
  1. PROTAPHANE HM [Suspect]
     Indication: INSULIN-REQUIRING TYPE 2 DIABETES MELLITUS
     Dosage: 50 IU, QD
     Route: 058
     Dates: start: 20050315
  2. HUMALOG [Suspect]
     Indication: INSULIN-REQUIRING TYPE 2 DIABETES MELLITUS
     Dosage: 34 IU, QD
     Route: 058
     Dates: start: 20090415
  3. ACTRAPID HM [Suspect]
     Indication: INSULIN-REQUIRING TYPE 2 DIABETES MELLITUS
     Dosage: 36 UNK, UNK
     Route: 058
  4. NOVORAPID [Concomitant]
     Dosage: UNK,ONCE A DAY
     Route: 048
     Dates: start: 20081029
  5. ARIFON [Concomitant]
     Dates: start: 20090121
  6. ACCUPRO [Concomitant]
     Dates: start: 20090218
  7. NORMODIPINE [Concomitant]
  8. ASPIRIN [Concomitant]
     Dates: start: 20081015
  9. CAVINTON [Concomitant]
     Dates: start: 20081001, end: 20081027
  10. NOOTROPYL [Concomitant]
     Dates: start: 20081001, end: 20081027
  11. BETASERC                           /00141801/ [Concomitant]
     Dates: start: 20081028, end: 20081110
  12. PALIN [Concomitant]
     Dates: start: 20081028, end: 20090131
  13. HYDROCHLOROTHIAZIDE [Concomitant]
     Dates: start: 20090218
  14. ALBUTEROL [Concomitant]
     Dates: start: 20090316, end: 20090323
  15. ATORVASTATIN [Concomitant]
     Dates: start: 20090602
  16. PHYSIOTENS [Concomitant]
  17. ASPIRIN [Concomitant]
     Dates: start: 20081015
  18. HYPOTHIAZIDE [Concomitant]
     Dosage: UNK, UNK
     Dates: start: 20090121

REACTIONS (2)
  - DIZZINESS [None]
  - SYNCOPE [None]
